FAERS Safety Report 9453174 (Version 1)
Quarter: 2013Q3

REPORT INFORMATION
  Report Type: Spontaneous
  Country: FR (occurrence: FR)
  Receive Date: 20130812
  Receipt Date: 20130812
  Transmission Date: 20140515
  Serious: Yes (Life-Threatening, Other)
  Sender: FDA-Public Use
  Company Number: FR-009507513-1308FRA001099

PATIENT
  Age: 69 Year
  Sex: Male

DRUGS (4)
  1. CHIBRO-PROSCAR [Suspect]
     Dosage: 1 DF, QD
     Route: 048
     Dates: end: 20130530
  2. VALDOXAN [Suspect]
     Indication: MAJOR DEPRESSION
     Dosage: 25 MG, QD
     Route: 048
     Dates: start: 20130501, end: 20130530
  3. OMEXEL [Suspect]
     Dosage: 1 DF, QD
     Route: 048
     Dates: end: 20130530
  4. TANAKAN [Suspect]
     Dosage: 3 DF, QD
     Route: 048

REACTIONS (2)
  - Acute hepatic failure [Not Recovered/Not Resolved]
  - Condition aggravated [Not Recovered/Not Resolved]
